FAERS Safety Report 7740994-X (Version None)
Quarter: 2011Q3

REPORT INFORMATION
  Report Type: 
  Country: None (occurrence: None)
  Receive Date: 20110909
  Receipt Date: 20110830
  Transmission Date: 20111222
  Serious: Yes (Other)
  Sender: FDA-Public Use
  Company Number: JP-PFIZER INC-2011154323

PATIENT
  Age: 84 Year
  Sex: Male
  Weight: 55 kg

DRUGS (8)
  1. XYLOCAINE [Suspect]
     Dosage: 2 ML SINGLE
     Route: 014
     Dates: start: 20110526, end: 20110526
  2. BETAMETHASONE [Suspect]
     Dosage: 2 MG SINGLE
     Route: 014
     Dates: start: 20110526, end: 20110526
  3. CELECOXIB [Suspect]
     Indication: PERIARTHRITIS
     Dosage: 100 MG, BID
     Dates: start: 20110526, end: 20110530
  4. CONIEL [Concomitant]
     Dosage: UNK
     Dates: start: 20100211
  5. LAXOBERON [Concomitant]
     Dosage: UNK
     Route: 048
     Dates: start: 20100807
  6. RACOL [Concomitant]
     Dosage: UNK
     Dates: start: 20110210
  7. CADEMESIN [Concomitant]
     Dosage: UNK
     Dates: start: 20090417
  8. TAGAMET [Concomitant]
     Dosage: UNK
     Dates: start: 20100212

REACTIONS (7)
  - WRONG TECHNIQUE IN DRUG USAGE PROCESS [None]
  - LOGORRHOEA [None]
  - ELEVATED MOOD [None]
  - ERYTHEMA [None]
  - HYPERKINESIA [None]
  - PRURITUS [None]
  - INSOMNIA [None]
